FAERS Safety Report 5307701-1 (Version None)
Quarter: 2007Q2

REPORT INFORMATION
  Report Type: 
  Country: None (occurrence: None)
  Receive Date: 20070419
  Receipt Date: 20070403
  Transmission Date: 20071010
  Serious: Yes (Hospitalization)
  Sender: FDA-Public Use
  Company Number: 16197

PATIENT
  Age: 69 Year
  Sex: Male
  Weight: 68.4932 kg

DRUGS (19)
  1. PENTOSTATIN [Suspect]
     Indication: CHRONIC LYMPHOCYTIC LEUKAEMIA
     Dosage: 7.24 MG Q3W IV
     Route: 042
     Dates: start: 20070123
  2. CYTOXAN [Suspect]
     Indication: CHRONIC LYMPHOCYTIC LEUKAEMIA
     Dosage: 108 MG Q3W IV
     Route: 042
     Dates: start: 20070123
  3. RITUXAN [Suspect]
     Indication: CHRONIC LYMPHOCYTIC LEUKAEMIA
     Dosage: 672 MG Q3W IV
     Route: 042
     Dates: start: 20070130
  4. COMPAZINE /00013302/ [Concomitant]
  5. TOPROL-XL [Concomitant]
  6. LIPITOR /01326101/. MFR:  NOT SPECIFIED [Concomitant]
  7. PRILOSEC [Concomitant]
  8. ASA. MFR:  NOT SPECIFIED [Concomitant]
  9. NIACIN [Concomitant]
  10. FEOSOL [Concomitant]
  11. CITRACAL + D [Concomitant]
  12. CENTRUM SILVER MVI [Concomitant]
  13. FISH OIL CAPS [Concomitant]
  14. ACYCLOVIR [Concomitant]
  15. ALOPURINOL [Concomitant]
  16. BACTRIM DS [Concomitant]
  17. CIPRO /00697201/. MFR:  NOT SPECIFIED [Concomitant]
  18. DAPSONE [Concomitant]
  19. ARANESP. MFR:  NOT SPECIFIED [Concomitant]

REACTIONS (3)
  - ANAPHYLACTIC REACTION [None]
  - PYREXIA [None]
  - TRANSFUSION REACTION [None]
